FAERS Safety Report 9844768 (Version 1)
Quarter: 2014Q1

REPORT INFORMATION
  Report Type: Spontaneous
  Country: FR (occurrence: None)
  Receive Date: 20140122
  Receipt Date: 20140122
  Transmission Date: 20141002
  Serious: Yes (Hospitalization)
  Sender: FDA-Public Use
  Company Number: DSM-2014-00029

PATIENT
  Age: 85 Year
  Sex: Female

DRUGS (8)
  1. ALTEIS (OLMESARTAN MEDOXOMIL) (TABLET) (OLMESARTAN MEDOXOMIL) [Suspect]
     Indication: PRODUCT USED FOR UNKNOWN INDICATION
     Route: 048
     Dates: start: 201311, end: 201312
  2. ALTEIS DUO (HYDROCHLOROTHIAZIDE, OLMESARTAN MEDOXOMIL) (TABLET) [Suspect]
     Indication: PRODUCT USED FOR UNKNOWN INDICATION
     Route: 048
     Dates: start: 201311, end: 201312
  3. KARDEGIC (ACETYLSALICYLATE LYSINE) (ACETYLSALICYLATE LYSINE) [Concomitant]
  4. DIFFU-K (POTASSIUM CHLORIDE) (POTASSIUM CHLORIDE) [Concomitant]
  5. CRESTOR (ROSUVASTATIN CALCIUM) [Concomitant]
  6. ZANIDIP (LERCANIDIPINE HYDROCHLORIDE) (LERCANIDIPINE [Concomitant]
  7. KEPPRA (LEVETIRACETAM) [Concomitant]
  8. DI-HYDAN (PHENYTOIN) [Concomitant]

REACTIONS (3)
  - Diarrhoea [None]
  - Renal failure acute [None]
  - Hypokalaemia [None]
